FAERS Safety Report 4613359-7 (Version None)
Quarter: 2005Q1

REPORT INFORMATION
  Report Type: 
  Country: None (occurrence: None)
  Receive Date: 20050316
  Receipt Date: 20031010
  Transmission Date: 20050727
  Serious: Yes (Hospitalization)
  Sender: FDA-Public Use
  Company Number: D01200301407

PATIENT
  Age: 75 Year
  Sex: Female
  Weight: 60 kg

DRUGS (11)
  1. CISPLATIN [Suspect]
     Indication: SMALL CELL LUNG CANCER EXTENSIVE STAGE
     Dosage: 890 MG/M2 CONT - INTRAVNEOUS NOS
     Route: 042
     Dates: start: 20031007, end: 20031007
  2. ETOPOSIDE [Suspect]
     Indication: SMALL CELL LUNG CANCER EXTENSIVE STAGE
     Dosage: ... MG/M2  GIVEN ON DAYS 1,2 AND 3, IN A 30-MINUTE  INFUSION - INTRAVENOUS NOS
     Route: 042
     Dates: start: 20031007, end: 20031009
  3. MANNITOL [Concomitant]
  4. FUROSEMIDE [Concomitant]
  5. DEXAMETHASONE SODIUM PHOSPHATE [Concomitant]
  6. METOCLOPRAMIDE [Concomitant]
  7. GLUCOSE [Concomitant]
  8. POTASSIUM CHLORIDE [Concomitant]
  9. KETOPROFEN [Concomitant]
  10. VERAPAMIL HYDROCHLORIDE [Concomitant]
  11. ONDASETRON HYDROCHLORIDE [Concomitant]

REACTIONS (4)
  - EPISTAXIS [None]
  - GASTRITIS EROSIVE [None]
  - HAEMATEMESIS [None]
  - HAEMOGLOBIN DECREASED [None]
